FAERS Safety Report 9005087 (Version 4)
Quarter: 2015Q4

REPORT INFORMATION
  Report Type: Spontaneous
  Country: NL (occurrence: NL)
  Receive Date: 20130109
  Receipt Date: 20151006
  Transmission Date: 20160305
  Serious: Yes (Life-Threatening, Hospitalization, Disabling)
  Sender: FDA-Public Use
  Company Number: NL-BAYER-2013-002692

PATIENT
  Age: 31 Year
  Sex: Female
  Weight: 70 kg

DRUGS (1)
  1. YAZ [Suspect]
     Active Substance: DROSPIRENONE\ETHINYL ESTRADIOL
     Indication: CONTRACEPTION
     Dosage: QD
     Route: 048
     Dates: start: 20120201, end: 20120417

REACTIONS (7)
  - Dyspnoea [Recovered/Resolved]
  - Total lung capacity decreased [None]
  - Pulmonary embolism [Recovered/Resolved]
  - Menorrhagia [None]
  - Syncope [Recovered/Resolved]
  - Pneumonia [Recovered/Resolved]
  - Pulmonary infarction [None]

NARRATIVE: CASE EVENT DATE: 20120301
